FAERS Safety Report 23139859 (Version 1)
Quarter: 2023Q4

REPORT INFORMATION
  Report Type: Spontaneous
  Country: US (occurrence: None)
  Receive Date: 20231101
  Receipt Date: 20231101
  Transmission Date: 20240109
  Serious: Yes (Hospitalization)
  Sender: FDA-Public Use
  Company Number: None

PATIENT

DRUGS (1)
  1. FOSPHENYTOIN [Suspect]
     Active Substance: FOSPHENYTOIN
     Route: 042

REACTIONS (2)
  - Device issue [None]
  - Incorrect dose administered by device [None]
